FAERS Safety Report 5628618-9 (Version None)
Quarter: 2008Q1

REPORT INFORMATION
  Report Type: 
  Country: None (occurrence: None)
  Receive Date: 20080215
  Receipt Date: 20080208
  Transmission Date: 20080703
  Serious: No
  Sender: FDA-Public Use
  Company Number: ES-MERCK-0710ESP00045M

PATIENT
  Age: 24 Year
  Sex: Female

DRUGS (3)
  1. SINGULAIR [Suspect]
     Indication: ASTHMA
     Route: 048
     Dates: end: 20070820
  2. ALBUTEROL [Concomitant]
     Indication: ASTHMA
     Dates: end: 20070820
  3. TERBUTALINE SULFATE [Concomitant]
     Indication: ASTHMA
     Dates: start: 20070820

REACTIONS (3)
  - ASTHMA [None]
  - DRUG EXPOSURE DURING PREGNANCY [None]
  - HAEMORRHAGE [None]
